FAERS Safety Report 13414011 (Version 1)
Quarter: 2017Q2

REPORT INFORMATION
  Report Type: Spontaneous
  Country: US (occurrence: US)
  Receive Date: 20170407
  Receipt Date: 20170407
  Transmission Date: 20170830
  Serious: No
  Sender: FDA-Public Use
  Company Number: None

PATIENT
  Age: 68 Year
  Sex: Female
  Weight: 60.38 kg

DRUGS (7)
  1. CALCIUM [Concomitant]
     Active Substance: CALCIUM
  2. VITAMIN D [Concomitant]
     Active Substance: CHOLECALCIFEROL
  3. MULTI VITAMIN ADULT 50+ [Concomitant]
  4. FLAXSEED [Concomitant]
     Active Substance: FLAX SEED
  5. MAGNESIUM [Concomitant]
     Active Substance: MAGNESIUM
  6. LEVOFLOXACIN 500MG TABLET AUR [Suspect]
     Active Substance: LEVOFLOXACIN
     Indication: PNEUMONIA
     Route: 048
     Dates: start: 20161230, end: 20170105
  7. ALEVE [Concomitant]
     Active Substance: NAPROXEN SODIUM

REACTIONS (6)
  - Musculoskeletal pain [None]
  - Pain [None]
  - Pain in jaw [None]
  - Joint swelling [None]
  - Arthralgia [None]
  - Arthritis [None]

NARRATIVE: CASE EVENT DATE: 20161230
